FAERS Safety Report 15172920 (Version 4)
Quarter: 2021Q3

REPORT INFORMATION
  Report Type: Spontaneous
  Country: US (occurrence: US)
  Receive Date: 20180720
  Receipt Date: 20210920
  Transmission Date: 20211014
  Serious: No
  Sender: FDA-Public Use
  Company Number: US-VIFOR (INTERNATIONAL) INC.-VIT-2018-07233

PATIENT
  Age: 71 Year
  Sex: Male

DRUGS (14)
  1. VELTASSA [Suspect]
     Active Substance: PATIROMER
     Indication: HYPERKALAEMIA
     Route: 048
     Dates: start: 20170113
  2. FENOFIBRATE. [Concomitant]
     Active Substance: FENOFIBRATE
  3. FISH OIL [Concomitant]
     Active Substance: FISH OIL
  4. METFORMIN [Concomitant]
     Active Substance: METFORMIN HYDROCHLORIDE
  5. SERTRALINE [Concomitant]
     Active Substance: SERTRALINE HYDROCHLORIDE
  6. VITAMIN D3 [Concomitant]
     Active Substance: CHOLECALCIFEROL
  7. IRBESARTAN. [Concomitant]
     Active Substance: IRBESARTAN
  8. LANTUS [Concomitant]
     Active Substance: INSULIN GLARGINE
  9. ROSUVASTATIN. [Concomitant]
     Active Substance: ROSUVASTATIN
  10. VELTASSA [Suspect]
     Active Substance: PATIROMER
     Route: 048
     Dates: start: 20210112
  11. VELTASSA [Suspect]
     Active Substance: PATIROMER
     Route: 048
     Dates: start: 20170117
  12. HUMALOG [Concomitant]
     Active Substance: INSULIN LISPRO
  13. NIFEDICAL XL [Concomitant]
     Active Substance: NIFEDIPINE
  14. ASPIRIN CH [Concomitant]
     Route: 048
     Dates: start: 20170113

REACTIONS (7)
  - Pain [Unknown]
  - Feeling abnormal [Not Recovered/Not Resolved]
  - Product colour issue [Unknown]
  - Flatulence [Unknown]
  - Constipation [Unknown]
  - Product physical issue [Unknown]
  - Product dose omission issue [Not Recovered/Not Resolved]

NARRATIVE: CASE EVENT DATE: 20210828
